FAERS Safety Report 17333078 (Version 1)
Quarter: 2020Q1

REPORT INFORMATION
  Report Type: Spontaneous
  Country: GB (occurrence: GB)
  Receive Date: 20200128
  Receipt Date: 20200128
  Transmission Date: 20200409
  Serious: Yes (Disabling)
  Sender: FDA-Public Use
  Company Number: GB-MYLANLABS-2020M1009879

PATIENT
  Age: 46 Year
  Sex: Male
  Weight: 76.2 kg

DRUGS (2)
  1. ARIPIPRAZOLE. [Suspect]
     Active Substance: ARIPIPRAZOLE
     Indication: PSYCHOTIC DISORDER
     Dosage: UNK
     Route: 048
     Dates: start: 20150701, end: 20180801
  2. SULPIRIDE [Suspect]
     Active Substance: SULPIRIDE
     Indication: PSYCHOTIC DISORDER
     Dosage: UNK
     Route: 048
     Dates: start: 19990601, end: 20150601

REACTIONS (3)
  - Ejaculation delayed [Unknown]
  - Erectile dysfunction [Not Recovered/Not Resolved]
  - Genital hypoaesthesia [Unknown]

NARRATIVE: CASE EVENT DATE: 20180505
